FAERS Safety Report 5708224-8 (Version None)
Quarter: 2008Q2

REPORT INFORMATION
  Report Type: 
  Country: None (occurrence: None)
  Receive Date: 20080417
  Receipt Date: 20080409
  Transmission Date: 20081010
  Serious: Yes (Hospitalization)
  Sender: FDA-Public Use
  Company Number: JP-BRISTOL-MYERS SQUIBB COMPANY-13849419

PATIENT
  Age: 25 Year
  Sex: Female

DRUGS (3)
  1. ABILIFY [Suspect]
     Indication: SCHIZOPHRENIA
     Dosage: 12MG -19-APR-07 TO 06-MAY-07.15MG:07-MAY-07 TO 30-MAY-07.18MG:31-MAY-07 TO20-JUN-07. 24MG:21-JUN-07
     Route: 048
     Dates: start: 20070405
  2. NITRAZEPAM [Concomitant]
     Dosage: DOSE FORM=TABLET
     Route: 048
     Dates: start: 20060727, end: 20080220
  3. LORAZEPAM [Concomitant]
     Route: 048
     Dates: start: 20060904

REACTIONS (3)
  - ABORTION THREATENED [None]
  - DRUG EXPOSURE DURING PREGNANCY [None]
  - NORMAL NEWBORN [None]
